FAERS Safety Report 6740568-3 (Version None)
Quarter: 2010Q2

REPORT INFORMATION
  Report Type: 
  Country: None (occurrence: None)
  Receive Date: 20100525
  Receipt Date: 20100511
  Transmission Date: 20101027
  Serious: Yes (Hospitalization)
  Sender: FDA-Public Use
  Company Number: AU-MYLANLABS-2010S1008237

PATIENT
  Age: 21 Year
  Sex: Female

DRUGS (7)
  1. TRAMADOL HCL [Suspect]
     Route: 048
  2. ESCITALOPRAM [Suspect]
     Route: 048
  3. MIRTAZAPINE [Suspect]
     Route: 048
  4. FLUOXETINE [Suspect]
     Route: 048
  5. LITHIUM CARBONATE [Suspect]
     Route: 048
  6. QUETIAPINE [Suspect]
     Route: 048
  7. RISPERIDONE [Suspect]
     Route: 048

REACTIONS (2)
  - MULTIPLE DRUG OVERDOSE [None]
  - SEROTONIN SYNDROME [None]
